FAERS Safety Report 9405433 (Version 2)
Quarter: 2013Q3

REPORT INFORMATION
  Report Type: Spontaneous
  Country: GB (occurrence: GB)
  Receive Date: 20130717
  Receipt Date: 20130719
  Transmission Date: 20140515
  Serious: Yes (Other)
  Sender: FDA-Public Use
  Company Number: GB-009507513-1307GBR007873

PATIENT
  Age: 5 Year
  Sex: Female

DRUGS (1)
  1. SINGULAIR PAEDIATRIC 4MG CHEWABLE TABLETS [Suspect]
     Indication: ASTHMA
     Dosage: 4 MG, QD
     Route: 048
     Dates: start: 20130201, end: 20130212

REACTIONS (8)
  - Anxiety [Recovered/Resolved]
  - Nightmare [Recovered/Resolved]
  - Tearfulness [Recovered/Resolved]
  - Social avoidant behaviour [Recovered/Resolved]
  - Hallucination [Recovered/Resolved]
  - Dizziness [Recovered/Resolved]
  - Depression [Recovered/Resolved]
  - Aggression [Recovered/Resolved]
